FAERS Safety Report 6731025-9 (Version None)
Quarter: 2010Q2

REPORT INFORMATION
  Report Type: 
  Country: None (occurrence: None)
  Receive Date: 20100514
  Receipt Date: 20100503
  Transmission Date: 20101027
  Serious: Yes (Other)
  Sender: FDA-Public Use
  Company Number: GER/GER/10/0012545

PATIENT
  Age: 62 Year
  Sex: Male
  Weight: 91 kg

DRUGS (1)
  1. ZOLPIDEM [Suspect]
     Indication: SLEEP DISORDER
     Dosage: 10 MG, 1 IN 1 D, ORAL
     Route: 048
     Dates: start: 20040101

REACTIONS (5)
  - ANXIETY [None]
  - DRUG WITHDRAWAL SYNDROME [None]
  - DYSAESTHESIA [None]
  - INSOMNIA [None]
  - RESTLESSNESS [None]
